FAERS Safety Report 7240341-6 (Version None)
Quarter: 2011Q1

REPORT INFORMATION
  Report Type: 
  Country: None (occurrence: None)
  Receive Date: 20110113
  Receipt Date: 20110104
  Transmission Date: 20110831
  Serious: Yes (Hospitalization)
  Sender: FDA-Public Use
  Company Number: 2010130542

PATIENT
  Age: 56 Year
  Sex: Female

DRUGS (6)
  1. DALTEPARIN SODIUM [Suspect]
     Indication: LUNG NEOPLASM MALIGNANT
     Dates: start: 20100715
  2. GEMCITABINE [Suspect]
  3. MORPHINE SULFATE [Concomitant]
  4. CARBOPLATIN [Suspect]
  5. ACETAMINOPHEN [Concomitant]
  6. DICLOFENAC SODIUM [Concomitant]

REACTIONS (1)
  - ANAEMIA [None]
